FAERS Safety Report 16011756 (Version 2)
Quarter: 2021Q2

REPORT INFORMATION
  Report Type: Spontaneous
  Country: US (occurrence: US)
  Receive Date: 20190227
  Receipt Date: 20210525
  Transmission Date: 20210716
  Serious: Yes (Other)
  Sender: FDA-Public Use
  Company Number: PHEH2019US008509

PATIENT
  Sex: Male

DRUGS (1)
  1. TASIGNA [Suspect]
     Active Substance: NILOTINIB
     Indication: CHRONIC MYELOID LEUKAEMIA
     Dosage: UNK UNK, BID
     Route: 048
     Dates: start: 20091209, end: 201807

REACTIONS (31)
  - Gangrene [Unknown]
  - Chronic left ventricular failure [Unknown]
  - Injury [Unknown]
  - Mitral valve incompetence [Unknown]
  - Restless legs syndrome [Unknown]
  - Fatigue [Unknown]
  - Chronic kidney disease [Unknown]
  - Peripheral vascular disorder [Unknown]
  - Systolic dysfunction [Unknown]
  - Atrial flutter [Unknown]
  - Dyspnoea [Unknown]
  - Insomnia [Unknown]
  - Gastritis [Unknown]
  - Pain in extremity [Unknown]
  - Arteriosclerosis [Unknown]
  - Pulmonary fibrosis [Unknown]
  - Tremor [Unknown]
  - Pain [Unknown]
  - Hypothyroidism [Unknown]
  - Iron deficiency anaemia [Unknown]
  - Weight decreased [Unknown]
  - Ventricular tachycardia [Unknown]
  - Pneumonia [Unknown]
  - Cerebrovascular accident [Unknown]
  - Coronary artery disease [Unknown]
  - Left ventricular hypertrophy [Unknown]
  - Tendonitis [Unknown]
  - Anxiety [Unknown]
  - Atrial fibrillation [Unknown]
  - Asthenia [Unknown]
  - Emotional distress [Unknown]
